FAERS Safety Report 8844466 (Version 1)
Quarter: 2012Q4

REPORT INFORMATION
  Report Type: 
  Country: CN (occurrence: CN)
  Receive Date: 20121017
  Receipt Date: 20121017
  Transmission Date: 20130627
  Serious: Yes (Other)
  Sender: FDA-Public Use
  Company Number: PHHY2012CN091018

PATIENT
  Age: 7 Year
  Sex: Male
  Weight: 22 kg

DRUGS (6)
  1. CICLOSPORIN [Suspect]
     Indication: GRAFT VERSUS HOST DISEASE
     Dosage: 3 mg/kg, UNK
  2. METHOTREXATE [Suspect]
     Indication: GRAFT VERSUS HOST DISEASE
     Dosage: 10-15 mg/m2, UNK
  3. GRANULOCYTE COLONY STIMULATING FACTOR [Suspect]
     Indication: GRAFT VERSUS HOST DISEASE
     Dosage: 5-10 ug/kg, UNK
  4. BUSULFAN [Concomitant]
     Dosage: 16 mg/kg, UNK
     Route: 048
  5. CYCLOPHOSPHAMIDE [Concomitant]
     Dosage: 200 mg/kg, UNK
     Route: 042
  6. FLUDARABINE [Concomitant]

REACTIONS (1)
  - Thalassaemia beta [Unknown]
